FAERS Safety Report 11222167 (Version 3)
Quarter: 2015Q3

REPORT INFORMATION
  Report Type: Report from Study
  Country: PH (occurrence: PH)
  Receive Date: 20150626
  Receipt Date: 20150717
  Transmission Date: 20151125
  Serious: Yes (Death, Hospitalization)
  Sender: FDA-Public Use
  Company Number: PHHY2015PH077007

PATIENT
  Sex: Female

DRUGS (2)
  1. GLIVEC [Suspect]
     Active Substance: IMATINIB MESYLATE
     Dosage: 800 MG, QD
     Route: 048
     Dates: start: 20100116
  2. GLIVEC [Suspect]
     Active Substance: IMATINIB MESYLATE
     Indication: PRODUCT USED FOR UNKNOWN INDICATION
     Dosage: 400 MG, QD
     Route: 048
     Dates: start: 20090817, end: 20100116

REACTIONS (6)
  - Abdominal distension [Unknown]
  - Abnormal faeces [Unknown]
  - Death [Fatal]
  - Decreased appetite [Unknown]
  - Abdominal pain [Unknown]
  - Irritability [Unknown]

NARRATIVE: CASE EVENT DATE: 20150611
